FAERS Safety Report 9736070 (Version 2)
Quarter: 2014Q1

REPORT INFORMATION
  Report Type: Spontaneous
  Country: US (occurrence: US)
  Receive Date: 20131206
  Receipt Date: 20140324
  Transmission Date: 20141002
  Serious: Yes (Death)
  Sender: FDA-Public Use
  Company Number: US-GLAXOSMITHKLINE-A1052384A

PATIENT
  Age: 90 Year
  Sex: Male
  Weight: 64.5 kg

DRUGS (14)
  1. PROMACTA [Suspect]
     Indication: IMMUNE THROMBOCYTOPENIC PURPURA
     Dosage: 50MG PER DAY
     Route: 048
     Dates: start: 201004
  2. WARFARIN SODIUM [Concomitant]
  3. FERROUS SULFATE [Concomitant]
  4. TAMSULOSIN HYDROCHLORIDE [Concomitant]
  5. SIMVASTATIN [Concomitant]
  6. TORSEMIDE [Concomitant]
  7. OMEPRAZOLE [Concomitant]
  8. KLOR-CON [Concomitant]
  9. ISOSORBIDE [Concomitant]
  10. CARVEDILOL [Concomitant]
  11. AMLODIPINE BESYLATE [Concomitant]
  12. ALLOPURINOL [Concomitant]
  13. METFORMIN HCL [Concomitant]
  14. DARBOPOETIN ALFA [Concomitant]

REACTIONS (2)
  - Death [Fatal]
  - Anaemia of chronic disease [Unknown]
